FAERS Safety Report 10251003 (Version 2)
Quarter: 2014Q2

REPORT INFORMATION
  Report Type: Report from Study
  Country: AR (occurrence: AR)
  Receive Date: 20140620
  Receipt Date: 20140620
  Transmission Date: 20141212
  Serious: Yes (Other)
  Sender: FDA-Public Use
  Company Number: AR-ABBVIE-14P-007-1230458-00

PATIENT
  Sex: Female

DRUGS (2)
  1. HUMIRA [Suspect]
     Indication: RHEUMATOID ARTHRITIS
     Route: 058
     Dates: start: 20111015
  2. HUMIRA [Suspect]
     Dates: start: 20140609

REACTIONS (3)
  - Joint effusion [Recovered/Resolved]
  - Groin pain [Unknown]
  - Arthralgia [Unknown]
